FAERS Safety Report 13569454 (Version 1)
Quarter: 2017Q2

REPORT INFORMATION
  Report Type: Report from Study
  Country: US (occurrence: US)
  Receive Date: 20170522
  Receipt Date: 20170522
  Transmission Date: 20170830
  Serious: Yes (Hospitalization, Other)
  Sender: FDA-Public Use
  Company Number: US-BAYER-2017-091209

PATIENT
  Age: 72 Year
  Sex: Male
  Weight: 103 kg

DRUGS (8)
  1. ACETYLSALICYLIC ACID [Suspect]
     Active Substance: ASPIRIN
     Dosage: UNK
  2. VALPROIC ACID. [Interacting]
     Active Substance: VALPROIC ACID
     Indication: MYOCLONUS
     Dosage: 30 MG/KG, QD
  3. VALPROIC ACID. [Interacting]
     Active Substance: VALPROIC ACID
     Indication: MYOCLONUS
     Dosage: 60 MG/KG, QD
  4. PROPOFOL. [Interacting]
     Active Substance: PROPOFOL
     Dosage: UNK
  5. VALPROIC ACID. [Interacting]
     Active Substance: VALPROIC ACID
     Indication: MYOCLONUS
     Dosage: 80 MG/KG, QD
  6. LEVETIRACETAM. [Concomitant]
     Active Substance: LEVETIRACETAM
     Indication: MYOCLONUS
     Dosage: UNK
  7. VALPROIC ACID. [Interacting]
     Active Substance: VALPROIC ACID
     Indication: MYOCLONUS
     Dosage: 40 MG/KG, QD
  8. MIDAZOLAM [Concomitant]
     Active Substance: MIDAZOLAM HYDROCHLORIDE

REACTIONS (5)
  - Drug prescribing error [Unknown]
  - Hepatic function abnormal [Unknown]
  - Hyperammonaemia [Unknown]
  - Drug interaction [Unknown]
  - Drug level changed [Unknown]
